FAERS Safety Report 7185834-5 (Version None)
Quarter: 2010Q4

REPORT INFORMATION
  Report Type: 
  Country: None (occurrence: None)
  Receive Date: 20101222
  Receipt Date: 20100610
  Transmission Date: 20110411
  Serious: No
  Sender: FDA-Public Use
  Company Number: US-AMGEN-KDL417532

PATIENT

DRUGS (9)
  1. ENBREL [Suspect]
     Indication: RHEUMATOID ARTHRITIS
     Dosage: 25 MG, 2 TIMES/WK
     Route: 058
     Dates: start: 20020901
  2. ESTROGENS CONJUGATED [Concomitant]
  3. MOMETASONE FUROATE MONOHYDRATE [Concomitant]
  4. FLURBIPROFEN [Concomitant]
  5. SIMVASTATIN [Concomitant]
  6. ACTONEL [Concomitant]
  7. ALBUTEROL SULFATE [Concomitant]
  8. TOCOPHEROL CONCENTRATE CAP [Concomitant]
  9. CALCIUM [Concomitant]

REACTIONS (1)
  - SINUSITIS [None]
